FAERS Safety Report 13680180 (Version 4)
Quarter: 2017Q3

REPORT INFORMATION
  Report Type: Spontaneous
  Country: US (occurrence: US)
  Receive Date: 20170622
  Receipt Date: 20170721
  Transmission Date: 20171127
  Serious: Yes (Hospitalization, Other)
  Sender: FDA-Public Use
  Company Number: US-ACTELION-A-NJ2017-155256

PATIENT
  Age: 62 Year
  Sex: Female
  Weight: 59.9 kg

DRUGS (21)
  1. LASIX [Concomitant]
     Active Substance: FUROSEMIDE
  2. ONDANSETRON [Concomitant]
     Active Substance: ONDANSETRON
  3. TRAMADOL. [Concomitant]
     Active Substance: TRAMADOL
  4. REVATIO [Concomitant]
     Active Substance: SILDENAFIL CITRATE
  5. ATORVASTATIN [Concomitant]
     Active Substance: ATORVASTATIN
  6. DIGOXIN. [Concomitant]
     Active Substance: DIGOXIN
  7. VITAMIN B12 [Concomitant]
     Active Substance: CYANOCOBALAMIN
  8. IMODIUM [Concomitant]
     Active Substance: LOPERAMIDE HYDROCHLORIDE
  9. AMBRISENTAN [Suspect]
     Active Substance: AMBRISENTAN
     Indication: PULMONARY HYPERTENSION
     Dosage: 10 MG, QD
     Route: 048
     Dates: start: 20100816
  10. PHENERGAN [Concomitant]
     Active Substance: PROMETHAZINE HYDROCHLORIDE
  11. CELLCEPT [Concomitant]
     Active Substance: MYCOPHENOLATE MOFETIL\MYCOPHENOLATE MOFETIL HYDROCHLORIDE
  12. TYVASO [Suspect]
     Active Substance: TREPROSTINIL
     Indication: PRODUCT USED FOR UNKNOWN INDICATION
     Dosage: 6 BREATHS, 4 SESSIONS DAILY
     Route: 055
  13. COUMADIN [Concomitant]
     Active Substance: WARFARIN SODIUM
  14. LIDOCAINE. [Concomitant]
     Active Substance: LIDOCAINE
  15. ROPINIROLE. [Concomitant]
     Active Substance: ROPINIROLE
  16. UPTRAVI [Suspect]
     Active Substance: SELEXIPAG
     Indication: PULMONARY HYPERTENSION
     Dosage: 1200 MCG, BID
     Route: 048
     Dates: start: 20170526
  17. UPTRAVI [Suspect]
     Active Substance: SELEXIPAG
     Dosage: UNK
     Route: 048
  18. PREVACID [Concomitant]
     Active Substance: LANSOPRAZOLE
  19. POTASSIUM CHLORIDE. [Concomitant]
     Active Substance: POTASSIUM CHLORIDE
  20. ASPIR 81 [Concomitant]
  21. HYDROXYCHLOROQUINE [Concomitant]
     Active Substance: HYDROXYCHLOROQUINE

REACTIONS (7)
  - Chest pain [Recovered/Resolved]
  - Right ventricular enlargement [Recovered/Resolved]
  - Vomiting [Recovered/Resolved]
  - Pulmonary hypertension [Recovered/Resolved]
  - Nausea [Not Recovered/Not Resolved]
  - Headache [Not Recovered/Not Resolved]
  - Heart valve incompetence [Recovered/Resolved]
